FAERS Safety Report 19683798 (Version 2)
Quarter: 2021Q3

REPORT INFORMATION
  Report Type: Spontaneous
  Country: US (occurrence: US)
  Receive Date: 20210811
  Receipt Date: 20210910
  Transmission Date: 20211014
  Serious: No
  Sender: FDA-Public Use
  Company Number: US-GILEAD-2021-0543357

PATIENT
  Sex: Female

DRUGS (9)
  1. XANAX [Concomitant]
     Active Substance: ALPRAZOLAM
  2. NEUPOGEN [Concomitant]
     Active Substance: FILGRASTIM
  3. VITAMIN C [Concomitant]
     Active Substance: ASCORBIC ACID
  4. ELDERBERRY [SAMBUCUS NIGRA] [Concomitant]
     Active Substance: DIETARY SUPPLEMENT\HERBALS
  5. EPCLUSA [Suspect]
     Active Substance: SOFOSBUVIR\VELPATASVIR
     Indication: INFECTION
     Dosage: 1 DOSAGE FORM, QD
     Route: 048
     Dates: start: 202107
  6. GABAPENTIN. [Concomitant]
     Active Substance: GABAPENTIN
  7. PROZAC [Concomitant]
     Active Substance: FLUOXETINE HYDROCHLORIDE
  8. LISINOPRIL/HYDROCHLOROTHIAZID [Concomitant]
     Active Substance: HYDROCHLOROTHIAZIDE\LISINOPRIL
  9. VITAMIN B12 [Concomitant]
     Active Substance: CYANOCOBALAMIN

REACTIONS (3)
  - Decreased appetite [Unknown]
  - Off label use [Not Recovered/Not Resolved]
  - Weight decreased [Unknown]
